FAERS Safety Report 9952614 (Version 1)
Quarter: 2014Q1

REPORT INFORMATION
  Report Type: Spontaneous
  Country: US (occurrence: US)
  Receive Date: 20140304
  Receipt Date: 20140304
  Transmission Date: 20141002
  Serious: No
  Sender: FDA-Public Use
  Company Number: US-ABBVIE-13P-163-1075943-00

PATIENT
  Age: 64 Year
  Sex: Female
  Weight: 52.21 kg

DRUGS (8)
  1. HUMIRA [Suspect]
     Indication: CROHN^S DISEASE
     Dates: start: 200802, end: 2012
  2. HUMIRA [Suspect]
     Dates: start: 2012
  3. LISINOPRIL [Concomitant]
     Indication: BLOOD PRESSURE
  4. NIFEDIPINE [Concomitant]
     Indication: BLOOD PRESSURE
  5. VITAMIN D [Concomitant]
     Indication: SUPPLEMENTATION THERAPY
  6. OMEPRAZOLE [Concomitant]
     Indication: GASTROOESOPHAGEAL REFLUX DISEASE
  7. TYLENOL ARTHRITIS [Concomitant]
     Indication: PAIN
  8. NAPROSYN [Concomitant]
     Indication: PAIN

REACTIONS (12)
  - Raynaud^s phenomenon [Unknown]
  - Local swelling [Unknown]
  - Pain in extremity [Unknown]
  - Erythema [Unknown]
  - Inflammation [Unknown]
  - Skin ulcer [Unknown]
  - Raynaud^s phenomenon [Recovering/Resolving]
  - Local swelling [Recovering/Resolving]
  - Pain in extremity [Recovering/Resolving]
  - Erythema [Recovering/Resolving]
  - Inflammation [Recovering/Resolving]
  - Skin ulcer [Recovering/Resolving]
